FAERS Safety Report 25502995 (Version 3)
Quarter: 2025Q4

REPORT INFORMATION
  Report Type: Spontaneous
  Country: CA (occurrence: CA)
  Receive Date: 20250702
  Receipt Date: 20251224
  Transmission Date: 20260118
  Serious: Yes (Death, Other)
  Sender: BRISTOL-MYERS SQUIBB COMPANY
  Company Number: CA-BRISTOL-MYERS SQUIBB COMPANY-2025-093355

PATIENT
  Age: 43 Year
  Sex: Female
  Weight: 68 kg

DRUGS (186)
  1. TRIAMCINOLONE ACETONIDE [Suspect]
     Active Substance: TRIAMCINOLONE ACETONIDE
     Indication: Rheumatoid arthritis
     Dosage: SUSPENSION INTRA-ARTICULAR
     Route: 013
  2. ERELZI [Concomitant]
     Active Substance: ETANERCEPT-SZZS
     Indication: Rheumatoid arthritis
  3. ERELZI [Concomitant]
     Active Substance: ETANERCEPT-SZZS
     Route: 048
  4. ERELZI [Concomitant]
     Active Substance: ETANERCEPT-SZZS
     Route: 058
  5. NAPROXEN SODIUM [Concomitant]
     Active Substance: NAPROXEN SODIUM
     Indication: Rheumatoid arthritis
     Dosage: 1 EVERY 1 DAYS
  6. NAPROXEN SODIUM [Concomitant]
     Active Substance: NAPROXEN SODIUM
     Indication: Product used for unknown indication
  7. NAPROXEN SODIUM [Concomitant]
     Active Substance: NAPROXEN SODIUM
     Route: 042
  8. PSEUDOEPHEDRINE HYDROCHLORIDE [Concomitant]
     Active Substance: PSEUDOEPHEDRINE HYDROCHLORIDE
     Indication: Rheumatoid arthritis
  9. PSEUDOEPHEDRINE HYDROCHLORIDE [Concomitant]
     Active Substance: PSEUDOEPHEDRINE HYDROCHLORIDE
     Dosage: 1 EVERY 1 DAYS
  10. PSEUDOEPHEDRINE HYDROCHLORIDE [Concomitant]
     Active Substance: PSEUDOEPHEDRINE HYDROCHLORIDE
  11. PSEUDOEPHEDRINE HYDROCHLORIDE [Concomitant]
     Active Substance: PSEUDOEPHEDRINE HYDROCHLORIDE
  12. HYDROXYCHLOROQUINE SULFATE [Concomitant]
     Active Substance: HYDROXYCHLOROQUINE SULFATE
     Indication: Rheumatoid arthritis
     Dosage: 1 EVERY 1 DAYS
  13. HYDROXYCHLOROQUINE SULFATE [Concomitant]
     Active Substance: HYDROXYCHLOROQUINE SULFATE
     Dosage: 1 EVERY 24 HOURS
  14. HYDROXYCHLOROQUINE SULFATE [Concomitant]
     Active Substance: HYDROXYCHLOROQUINE SULFATE
     Dosage: 1 EVERY 1 DAYS
     Route: 048
  15. HYDROXYCHLOROQUINE SULFATE [Concomitant]
     Active Substance: HYDROXYCHLOROQUINE SULFATE
     Dosage: 1 EVERY 1 DAYS
     Route: 048
  16. HYDROXYCHLOROQUINE SULFATE [Concomitant]
     Active Substance: HYDROXYCHLOROQUINE SULFATE
     Dosage: 1 EVERY 1 DAYS
     Route: 066
  17. HYDROXYCHLOROQUINE SULFATE [Concomitant]
     Active Substance: HYDROXYCHLOROQUINE SULFATE
  18. HYDROXYCHLOROQUINE SULFATE [Concomitant]
     Active Substance: HYDROXYCHLOROQUINE SULFATE
     Route: 048
  19. HYDROXYCHLOROQUINE SULFATE [Concomitant]
     Active Substance: HYDROXYCHLOROQUINE SULFATE
  20. HYDROXYCHLOROQUINE SULFATE [Concomitant]
     Active Substance: HYDROXYCHLOROQUINE SULFATE
     Route: 048
  21. COSENTYX [Concomitant]
     Active Substance: SECUKINUMAB
     Indication: Psoriatic arthropathy
     Route: 042
  22. COSENTYX [Concomitant]
     Active Substance: SECUKINUMAB
     Dosage: 1 EVERY 1 DAYS
     Route: 042
  23. COSENTYX [Concomitant]
     Active Substance: SECUKINUMAB
     Route: 048
  24. COSENTYX [Concomitant]
     Active Substance: SECUKINUMAB
  25. COSENTYX [Concomitant]
     Active Substance: SECUKINUMAB
     Route: 042
  26. COSENTYX [Concomitant]
     Active Substance: SECUKINUMAB
     Route: 042
  27. CORTISONE [Concomitant]
     Active Substance: CORTISONE
     Indication: Rheumatoid arthritis
  28. CORTISONE [Concomitant]
     Active Substance: CORTISONE
  29. CORTISONE [Concomitant]
     Active Substance: CORTISONE
     Route: 058
  30. CORTISONE [Concomitant]
     Active Substance: CORTISONE
     Route: 048
  31. CORTISONE [Concomitant]
     Active Substance: CORTISONE
     Route: 003
  32. CORTISONE [Concomitant]
     Active Substance: CORTISONE
     Route: 058
  33. CORTISONE [Concomitant]
     Active Substance: CORTISONE
     Route: 003
  34. CORTISONE [Concomitant]
     Active Substance: CORTISONE
  35. CORTISONE [Concomitant]
     Active Substance: CORTISONE
     Route: 048
  36. SULFASALAZINE [Concomitant]
     Active Substance: SULFASALAZINE
     Indication: Rheumatoid arthritis
  37. SULFASALAZINE [Concomitant]
     Active Substance: SULFASALAZINE
     Indication: Psoriatic arthropathy
     Dosage: 1 EVERY 1 DAYS
     Route: 048
  38. SULFASALAZINE [Concomitant]
     Active Substance: SULFASALAZINE
     Dosage: 1 EVERY 1 DAYS
     Route: 048
  39. SULFASALAZINE [Concomitant]
     Active Substance: SULFASALAZINE
     Route: 048
  40. SULFASALAZINE [Concomitant]
     Active Substance: SULFASALAZINE
     Route: 048
  41. SULFASALAZINE [Concomitant]
     Active Substance: SULFASALAZINE
  42. SULFASALAZINE [Concomitant]
     Active Substance: SULFASALAZINE
     Route: 048
  43. SULFASALAZINE [Concomitant]
     Active Substance: SULFASALAZINE
     Dosage: 1 EVERY 1 DAYS
     Route: 048
  44. SULFASALAZINE [Concomitant]
     Active Substance: SULFASALAZINE
  45. PREDNISONE [Concomitant]
     Active Substance: PREDNISONE
     Indication: Rheumatoid arthritis
     Route: 048
  46. PREDNISONE [Concomitant]
     Active Substance: PREDNISONE
  47. PREDNISONE [Concomitant]
     Active Substance: PREDNISONE
  48. PREDNISONE [Concomitant]
     Active Substance: PREDNISONE
  49. METHOTREXATE [Concomitant]
     Active Substance: METHOTREXATE
     Indication: Rheumatoid arthritis
     Dosage: INJECTION, USP
     Route: 058
  50. METHOTREXATE [Concomitant]
     Active Substance: METHOTREXATE
     Dosage: INJECTION, USP
     Route: 013
  51. METHOTREXATE [Concomitant]
     Active Substance: METHOTREXATE
     Dosage: INJECTION, USP
     Route: 048
  52. METHOTREXATE [Concomitant]
     Active Substance: METHOTREXATE
     Dosage: INJECTION, USP
     Route: 048
  53. METHOTREXATE [Concomitant]
     Active Substance: METHOTREXATE
     Dosage: INJECTION, USP
     Route: 048
  54. METHOTREXATE [Concomitant]
     Active Substance: METHOTREXATE
     Dosage: INJECTION, USP
     Route: 048
  55. METHOTREXATE [Concomitant]
     Active Substance: METHOTREXATE
     Dosage: INJECTION, USP
     Route: 048
  56. METHOTREXATE [Concomitant]
     Active Substance: METHOTREXATE
     Dosage: INJECTION, USP
     Route: 048
  57. METHOTREXATE [Concomitant]
     Active Substance: METHOTREXATE
     Dosage: INJECTION, USP
     Route: 058
  58. METHOTREXATE [Concomitant]
     Active Substance: METHOTREXATE
     Dosage: INJECTION, USP
  59. METHOTREXATE [Concomitant]
     Active Substance: METHOTREXATE
     Dosage: INJECTION, USP
  60. METHOTREXATE [Concomitant]
     Active Substance: METHOTREXATE
     Dosage: INJECTION, USP
  61. METHOTREXATE [Concomitant]
     Active Substance: METHOTREXATE
     Dosage: INJECTION, USP
  62. METHOTREXATE [Concomitant]
     Active Substance: METHOTREXATE
     Dosage: INJECTION, USP
  63. METHOTREXATE [Concomitant]
     Active Substance: METHOTREXATE
  64. METHOTREXATE [Concomitant]
     Active Substance: METHOTREXATE
     Dosage: INJECTION, USP
     Route: 013
  65. FOLIC ACID [Concomitant]
     Active Substance: FOLIC ACID
     Indication: Rheumatoid arthritis
  66. FOLIC ACID [Concomitant]
     Active Substance: FOLIC ACID
  67. FOLIC ACID [Concomitant]
     Active Substance: FOLIC ACID
     Route: 048
  68. FOLIC ACID [Concomitant]
     Active Substance: FOLIC ACID
     Dosage: 1 EVERY 1 DAYS
     Route: 048
  69. FOLIC ACID [Concomitant]
     Active Substance: FOLIC ACID
  70. FOLIC ACID [Concomitant]
     Active Substance: FOLIC ACID
     Route: 048
  71. FOLIC ACID [Concomitant]
     Active Substance: FOLIC ACID
     Route: 048
  72. FOLIC ACID [Concomitant]
     Active Substance: FOLIC ACID
  73. FOLIC ACID [Concomitant]
     Active Substance: FOLIC ACID
  74. FOLIC ACID [Concomitant]
     Active Substance: FOLIC ACID
  75. DESOXIMETASONE [Concomitant]
     Active Substance: DESOXIMETASONE
     Indication: Rheumatoid arthritis
     Route: 048
  76. DESOXIMETASONE [Concomitant]
     Active Substance: DESOXIMETASONE
     Route: 048
  77. DESOXIMETASONE [Concomitant]
     Active Substance: DESOXIMETASONE
  78. DESOXIMETASONE [Concomitant]
     Active Substance: DESOXIMETASONE
  79. DESOXIMETASONE [Concomitant]
     Active Substance: DESOXIMETASONE
     Route: 058
  80. DESOXIMETASONE [Concomitant]
     Active Substance: DESOXIMETASONE
  81. DESOXIMETASONE [Concomitant]
     Active Substance: DESOXIMETASONE
     Route: 003
  82. DESOXIMETASONE [Concomitant]
     Active Substance: DESOXIMETASONE
  83. DESOXIMETASONE [Concomitant]
     Active Substance: DESOXIMETASONE
     Route: 048
  84. CORTISONE ACETATE [Concomitant]
     Active Substance: CORTISONE ACETATE
     Indication: Rheumatoid arthritis
  85. CORTISONE ACETATE [Concomitant]
     Active Substance: CORTISONE ACETATE
     Dosage: RHEUMATOID ARTHRITIS
  86. CORTISONE ACETATE [Concomitant]
     Active Substance: CORTISONE ACETATE
  87. CETIRIZINE HYDROCHLORIDE [Concomitant]
     Active Substance: CETIRIZINE HYDROCHLORIDE
     Indication: Rheumatoid arthritis
  88. CETIRIZINE HYDROCHLORIDE [Concomitant]
     Active Substance: CETIRIZINE HYDROCHLORIDE
     Dosage: 1 EVERY 1 DAYS
  89. CETIRIZINE HYDROCHLORIDE [Concomitant]
     Active Substance: CETIRIZINE HYDROCHLORIDE
  90. CETIRIZINE HYDROCHLORIDE [Concomitant]
     Active Substance: CETIRIZINE HYDROCHLORIDE
  91. CETIRIZINE HYDROCHLORIDE [Concomitant]
     Active Substance: CETIRIZINE HYDROCHLORIDE
  92. CETIRIZINE HYDROCHLORIDE [Concomitant]
     Active Substance: CETIRIZINE HYDROCHLORIDE
     Route: 048
  93. CETIRIZINE HYDROCHLORIDE [Concomitant]
     Active Substance: CETIRIZINE HYDROCHLORIDE
     Route: 048
  94. CETIRIZINE HYDROCHLORIDE [Concomitant]
     Active Substance: CETIRIZINE HYDROCHLORIDE
     Route: 048
  95. CETIRIZINE HYDROCHLORIDE [Concomitant]
     Active Substance: CETIRIZINE HYDROCHLORIDE
  96. CETIRIZINE HYDROCHLORIDE [Concomitant]
     Active Substance: CETIRIZINE HYDROCHLORIDE
  97. ALENDRONATE SODIUM [Concomitant]
     Active Substance: ALENDRONATE SODIUM
     Indication: Rheumatoid arthritis
  98. ALENDRONATE SODIUM [Concomitant]
     Active Substance: ALENDRONATE SODIUM
     Route: 048
  99. ALENDRONATE SODIUM [Concomitant]
     Active Substance: ALENDRONATE SODIUM
  100. ALENDRONATE SODIUM [Concomitant]
     Active Substance: ALENDRONATE SODIUM
  101. ALENDRONATE SODIUM [Concomitant]
     Active Substance: ALENDRONATE SODIUM
     Route: 048
  102. ALENDRONATE SODIUM\CHOLECALCIFEROL [Concomitant]
     Active Substance: ALENDRONATE SODIUM\CHOLECALCIFEROL
     Indication: Rheumatoid arthritis
     Route: 048
  103. ACETAMINOPHEN [Concomitant]
     Active Substance: ACETAMINOPHEN
     Indication: Product used for unknown indication
  104. ACETAMINOPHEN [Concomitant]
     Active Substance: ACETAMINOPHEN
     Route: 048
  105. ACETAMINOPHEN [Concomitant]
     Active Substance: ACETAMINOPHEN
  106. ATOMOXETINE HYDROCHLORIDE [Concomitant]
     Active Substance: ATOMOXETINE HYDROCHLORIDE
     Indication: Migraine
  107. ACETAMINOPHEN AND CODEINE [Concomitant]
     Active Substance: ACETAMINOPHEN\CODEINE PHOSPHATE
     Indication: Product used for unknown indication
  108. ACETAMINOPHEN\TRAMADOL [Concomitant]
     Active Substance: ACETAMINOPHEN\TRAMADOL
     Indication: Product used for unknown indication
  109. ALENDRONATE SODIUM\CHOLECALCIFEROL [Concomitant]
     Active Substance: ALENDRONATE SODIUM\CHOLECALCIFEROL
     Indication: Rheumatoid arthritis
  110. PANTOPRAZOLE SODIUM ANHYDROUS [Concomitant]
     Active Substance: PANTOPRAZOLE SODIUM ANHYDROUS
     Indication: Product used for unknown indication
  111. ATIVAN [Concomitant]
     Active Substance: LORAZEPAM
     Indication: Product used for unknown indication
  112. BUPRENORPHINE HYDROCHLORIDE [Concomitant]
     Active Substance: BUPRENORPHINE HYDROCHLORIDE
     Indication: Product used for unknown indication
  113. CAFFEINE [Concomitant]
     Active Substance: CAFFEINE
     Indication: Product used for unknown indication
  114. CAFFEINE;CHLORPHENAMINE MALEATE;ISOPROPAMIDE IODIDE;LYSOZYME HYDROCHLO [Concomitant]
     Indication: Rheumatoid arthritis
  115. CALCIUM CHLORIDE [Concomitant]
     Active Substance: CALCIUM CHLORIDE
     Indication: Product used for unknown indication
  116. CALCIUM LACTATE GLUCONATE [Concomitant]
     Active Substance: CALCIUM LACTATE GLUCONATE
     Indication: Product used for unknown indication
  117. CETRIMONIUM BROMIDE [Concomitant]
     Active Substance: CETRIMONIUM BROMIDE
     Indication: Product used for unknown indication
  118. CHLORAPREP [Concomitant]
     Active Substance: CHLORHEXIDINE GLUCONATE\ISOPROPYL ALCOHOL
     Indication: Product used for unknown indication
  119. CHLORHEXIDINE [Concomitant]
     Active Substance: CHLORHEXIDINE
     Indication: Product used for unknown indication
  120. CHLORHEXIDINE ACETATE [Concomitant]
     Active Substance: CHLORHEXIDINE ACETATE
     Indication: Product used for unknown indication
     Route: 048
  121. CHLORHEXIDINE ACETATE [Concomitant]
     Active Substance: CHLORHEXIDINE ACETATE
  122. CHLORHEXIDINE ACETATE [Concomitant]
     Active Substance: CHLORHEXIDINE ACETATE
  123. CHLORHEXIDINE GLUCONATE\ISOPROPYL ALCOHOL [Concomitant]
     Active Substance: CHLORHEXIDINE GLUCONATE\ISOPROPYL ALCOHOL
     Indication: Product used for unknown indication
  124. CHLORHEXIDINE GLUCONATE\ISOPROPYL ALCOHOL [Concomitant]
     Active Substance: CHLORHEXIDINE GLUCONATE\ISOPROPYL ALCOHOL
  125. COD LIVER OIL [Concomitant]
     Active Substance: COD LIVER OIL
     Indication: Product used for unknown indication
  126. CYANOCOBALAMIN [Concomitant]
     Active Substance: CYANOCOBALAMIN
     Indication: Product used for unknown indication
  127. DEXAMETHASONE [Concomitant]
     Active Substance: DEXAMETHASONE
     Indication: Product used for unknown indication
  128. DEXAMETHASONE [Concomitant]
     Active Substance: DEXAMETHASONE
     Route: 048
  129. DOXYCYCLINE HYCLATE [Concomitant]
     Active Substance: DOXYCYCLINE HYCLATE
     Indication: Product used for unknown indication
  130. ELBASVIR [Concomitant]
     Active Substance: ELBASVIR
     Indication: Product used for unknown indication
  131. ERENUMAB [Concomitant]
     Active Substance: ERENUMAB
     Indication: Migraine
  132. ERGOCALCIFEROL [Concomitant]
     Active Substance: ERGOCALCIFEROL
     Indication: Product used for unknown indication
  133. GLUCOSAMINE [Concomitant]
     Active Substance: GLUCOSAMINE
     Indication: Product used for unknown indication
  134. MENTHOL\ZINC OXIDE [Concomitant]
     Active Substance: MENTHOL\ZINC OXIDE
     Indication: Product used for unknown indication
  135. HAMAMELIS VIRGINIANA [Concomitant]
     Active Substance: HAMAMELIS VIRGINIANA ROOT BARK/STEM BARK
     Indication: Rheumatoid arthritis
  136. HYDROCORTISONE ACETATE [Concomitant]
     Active Substance: HYDROCORTISONE ACETATE
     Indication: Rheumatoid arthritis
     Route: 058
  137. HYDROCORTISONE ACETATE [Concomitant]
     Active Substance: HYDROCORTISONE ACETATE
     Route: 003
  138. HYDROCORTISONE ACETATE [Concomitant]
     Active Substance: HYDROCORTISONE ACETATE
     Route: 048
  139. HYDROCORTISONE ACETATE [Concomitant]
     Active Substance: HYDROCORTISONE ACETATE
  140. HYDROCORTISONE BUTYRATE [Concomitant]
     Active Substance: HYDROCORTISONE BUTYRATE
     Indication: Rheumatoid arthritis
  141. HYDROCORTISONE SODIUM SUCCINATE [Concomitant]
     Active Substance: HYDROCORTISONE SODIUM SUCCINATE
     Indication: Rheumatoid arthritis
     Route: 048
  142. HYDROCORTISONE SODIUM SUCCINATE [Concomitant]
     Active Substance: HYDROCORTISONE SODIUM SUCCINATE
  143. HYDROCORTISONE SODIUM SUCCINATE [Concomitant]
     Active Substance: HYDROCORTISONE SODIUM SUCCINATE
  144. HYDROCORTISONE SODIUM SUCCINATE [Concomitant]
     Active Substance: HYDROCORTISONE SODIUM SUCCINATE
     Route: 058
  145. HYDROMORPHONE HYDROCHLORIDE [Concomitant]
     Active Substance: HYDROMORPHONE HYDROCHLORIDE
     Indication: Product used for unknown indication
  146. IODINE [Concomitant]
     Active Substance: IODINE
     Indication: Product used for unknown indication
  147. ISOPROPYL ALCOHOL [Concomitant]
     Active Substance: ISOPROPYL ALCOHOL
     Indication: Product used for unknown indication
  148. LANSOPRAZOLE [Concomitant]
     Active Substance: LANSOPRAZOLE
     Indication: Product used for unknown indication
  149. LEVOTHYROXINE SODIUM [Concomitant]
     Active Substance: LEVOTHYROXINE SODIUM
     Indication: Product used for unknown indication
  150. CLIOQUINOL\FLUMETHASONE [Concomitant]
     Active Substance: CLIOQUINOL\FLUMETHASONE
     Indication: Product used for unknown indication
  151. LORAZEPAM [Concomitant]
     Active Substance: LORAZEPAM
     Indication: Product used for unknown indication
  152. MAGNESIUM CHLORIDE [Concomitant]
     Active Substance: MAGNESIUM CHLORIDE
     Indication: Product used for unknown indication
     Dosage: SOLUTION
     Route: 048
  153. MAGNESIUM CHLORIDE [Concomitant]
     Active Substance: MAGNESIUM CHLORIDE
     Dosage: SOLUTION
  154. IODAMIDE MEGLUMINE [Concomitant]
     Active Substance: IODAMIDE MEGLUMINE
     Indication: Product used for unknown indication
     Route: 042
  155. METFORMIN [Concomitant]
     Active Substance: METFORMIN HYDROCHLORIDE
     Indication: Migraine
  156. OMEPRAZOLE SODIUM [Concomitant]
     Active Substance: OMEPRAZOLE SODIUM
     Indication: Product used for unknown indication
  157. OXYQUINOLINE SULFATE [Concomitant]
     Active Substance: OXYQUINOLINE SULFATE
     Indication: Product used for unknown indication
     Route: 048
  158. OXYQUINOLINE SULFATE [Concomitant]
     Active Substance: OXYQUINOLINE SULFATE
     Route: 048
  159. OXYQUINOLINE SULFATE [Concomitant]
     Active Substance: OXYQUINOLINE SULFATE
     Route: 048
  160. OXYQUINOLINE SULFATE [Concomitant]
     Active Substance: OXYQUINOLINE SULFATE
  161. PREDNISOLONE [Concomitant]
     Active Substance: PREDNISOLONE
     Indication: Product used for unknown indication
  162. QUETIAPINE FUMARATE [Concomitant]
     Active Substance: QUETIAPINE FUMARATE
     Indication: Product used for unknown indication
  163. RITUXIMAB [Concomitant]
     Active Substance: RITUXIMAB
     Indication: Product used for unknown indication
     Route: 016
  164. RITUXIMAB [Concomitant]
     Active Substance: RITUXIMAB
     Route: 042
  165. RITUXIMAB [Concomitant]
     Active Substance: RITUXIMAB
  166. RITUXIMAB [Concomitant]
     Active Substance: RITUXIMAB
     Route: 058
  167. RITUXIMAB [Concomitant]
     Active Substance: RITUXIMAB
     Route: 043
  168. DIETARY SUPPLEMENT\HERBALS [Concomitant]
     Active Substance: DIETARY SUPPLEMENT\HERBALS
     Indication: Product used for unknown indication
  169. FISH OIL [Concomitant]
     Active Substance: FISH OIL
     Indication: Product used for unknown indication
  170. SODIUM AUROTIOSULFATE [Concomitant]
     Active Substance: SODIUM AUROTIOSULFATE
     Indication: Product used for unknown indication
  171. SODIUM AUROTIOSULFATE [Concomitant]
     Active Substance: SODIUM AUROTIOSULFATE
     Route: 030
  172. TIBOLONE [Concomitant]
     Active Substance: TIBOLONE
     Indication: Product used for unknown indication
  173. TOPAMAX [Concomitant]
     Active Substance: TOPIRAMATE
     Indication: Migraine
     Route: 048
  174. TOPAMAX [Concomitant]
     Active Substance: TOPIRAMATE
  175. TOPAMAX [Concomitant]
     Active Substance: TOPIRAMATE
     Route: 048
  176. TOPAMAX [Concomitant]
     Active Substance: TOPIRAMATE
  177. TOPAMAX [Concomitant]
     Active Substance: TOPIRAMATE
  178. TOPAMAX [Concomitant]
     Active Substance: TOPIRAMATE
     Route: 048
  179. TOPAMAX [Concomitant]
     Active Substance: TOPIRAMATE
     Route: 048
  180. CYANOCOBALAMIN [Concomitant]
     Active Substance: CYANOCOBALAMIN
     Indication: Product used for unknown indication
  181. HYALURONIDASE (HUMAN RECOMBINANT) [Concomitant]
     Active Substance: HYALURONIDASE (HUMAN RECOMBINANT)
     Indication: Rheumatoid arthritis
     Route: 058
  182. HYALURONIDASE (HUMAN RECOMBINANT) [Concomitant]
     Active Substance: HYALURONIDASE (HUMAN RECOMBINANT)
     Route: 042
  183. CHLORHEXIDINE GLUCONATE [Concomitant]
     Active Substance: CHLORHEXIDINE GLUCONATE
     Indication: Product used for unknown indication
  184. CODEINE [Concomitant]
     Active Substance: CODEINE
     Indication: Product used for unknown indication
  185. ERENUMAB-AOOE [Concomitant]
     Active Substance: ERENUMAB-AOOE
     Indication: Migraine
  186. PSEUDOEPHEDRINE HYDROCHLORIDE [Concomitant]
     Active Substance: PSEUDOEPHEDRINE HYDROCHLORIDE
     Indication: Product used for unknown indication

REACTIONS (1)
  - Death [Fatal]
